FAERS Safety Report 9155484 (Version 3)
Quarter: 2013Q2

REPORT INFORMATION
  Report Type: Spontaneous
  Country: US (occurrence: US)
  Receive Date: 20130311
  Receipt Date: 20130506
  Transmission Date: 20140414
  Serious: No
  Sender: FDA-Public Use
  Company Number: US-PFIZER INC-2013079200

PATIENT
  Age: 61 Year
  Sex: Male
  Weight: 71.2 kg

DRUGS (1)
  1. VIAGRA [Suspect]
     Indication: ERECTILE DYSFUNCTION
     Dosage: 100 MG, 1 TABLET AS NEEDED
     Route: 048

REACTIONS (1)
  - Drug ineffective [Unknown]
